FAERS Safety Report 20049003 (Version 1)
Quarter: 2021Q4

REPORT INFORMATION
  Report Type: Spontaneous
  Country: JP (occurrence: JP)
  Receive Date: 20211109
  Receipt Date: 20211109
  Transmission Date: 20220304
  Serious: Yes (Other)
  Sender: FDA-Public Use
  Company Number: JP-BAYER-2021A243325

PATIENT
  Age: 50 Year
  Sex: Male

DRUGS (2)
  1. JIVI [Suspect]
     Active Substance: DAMOCTOCOG ALFA PEGOL
     Indication: Haemostasis
     Dosage: UNK UNK, BIW
  2. JIVI [Suspect]
     Active Substance: DAMOCTOCOG ALFA PEGOL
     Indication: Haemostasis
     Dosage: UNK
     Route: 042

REACTIONS (2)
  - Post procedural haemorrhage [Recovered/Resolved]
  - Inappropriate schedule of product administration [None]
